FAERS Safety Report 5652519-3 (Version None)
Quarter: 2008Q1

REPORT INFORMATION
  Report Type: 
  Country: None (occurrence: None)
  Receive Date: 20080305
  Receipt Date: 20080305
  Transmission Date: 20080703
  Serious: Yes (Death, Life-Threatening, Hospitalization)
  Sender: FDA-Public Use
  Company Number: None

PATIENT
  Age: 71 Year
  Sex: Female
  Weight: 55.8 kg

DRUGS (13)
  1. WARFARIN SODIUM [Suspect]
     Indication: ATRIAL FIBRILLATION
     Dosage: 3MG DAILY PO
     Route: 048
     Dates: start: 20070511, end: 20070529
  2. CRESTOR [Concomitant]
  3. ASPIRIN [Concomitant]
  4. METOPROLOL TARTRATE [Concomitant]
  5. NEXIUM [Concomitant]
  6. AMIODARONE HCL [Concomitant]
  7. BICITRA [Concomitant]
  8. EFFEXOR [Concomitant]
  9. COLACE [Concomitant]
  10. DIGOXIN [Concomitant]
  11. NEPRO [Concomitant]
  12. AMLODIPINE [Concomitant]
  13. HUMULIN 70/30 [Concomitant]

REACTIONS (10)
  - ATRIAL FIBRILLATION [None]
  - CEREBROVASCULAR ACCIDENT [None]
  - DRUG LEVEL BELOW THERAPEUTIC [None]
  - FALL [None]
  - HEAD INJURY [None]
  - INTERNATIONAL NORMALISED RATIO INCREASED [None]
  - MENTAL STATUS CHANGES [None]
  - RENAL IMPAIRMENT [None]
  - SKIN LACERATION [None]
  - SUBDURAL HAEMORRHAGE [None]
